FAERS Safety Report 11724566 (Version 2)
Quarter: 2016Q1

REPORT INFORMATION
  Report Type: Report from Study
  Country: HU (occurrence: HU)
  Receive Date: 20151111
  Receipt Date: 20160328
  Transmission Date: 20160525
  Serious: Yes (Hospitalization)
  Sender: FDA-Public Use
  Company Number: HU-ABBVIE-15K-076-1496480-00

PATIENT
  Age: 72 Year
  Sex: Male

DRUGS (5)
  1. STALEVO [Concomitant]
     Active Substance: CARBIDOPA\ENTACAPONE\LEVODOPA
     Indication: PARKINSON^S DISEASE
     Dosage: 150/37.5/200 MG
     Route: 048
     Dates: start: 2011
  2. ACTRAPID [Concomitant]
     Active Substance: INSULIN HUMAN
     Indication: DIABETES MELLITUS
     Dosage: MORNING DOSE: 12UNIT; DAILY DOSE: 14UNIT; EVENING DOSE: 10UNIT
     Route: 058
     Dates: start: 2005
  3. DUODOPA [Suspect]
     Active Substance: CARBIDOPA\LEVODOPA
     Indication: PARKINSON^S DISEASE
     Dosage: MD: 3ML; CD DAY: 4.8ML/H; CD NIGHT: 4.2ML/H;ED: 2.0ML
     Route: 050
     Dates: start: 20150420
  4. MEFORAL [Concomitant]
     Indication: DIABETES MELLITUS
     Route: 048
     Dates: start: 2003
  5. ISOPHANE INSULIN [Concomitant]
     Active Substance: INSULIN NOS
     Indication: DIABETES MELLITUS
     Route: 058
     Dates: start: 2005

REACTIONS (4)
  - Posture abnormal [Not Recovered/Not Resolved]
  - Fall [Recovering/Resolving]
  - Intervertebral disc calcification [Not Recovered/Not Resolved]
  - Sternal fracture [Recovering/Resolving]

NARRATIVE: CASE EVENT DATE: 201510
